FAERS Safety Report 7365824-X (Version None)
Quarter: 2011Q1

REPORT INFORMATION
  Report Type: 
  Country: None (occurrence: None)
  Receive Date: 20110316
  Receipt Date: 20110316
  Transmission Date: 20110831
  Serious: No
  Sender: FDA-Public Use
  Company Number: None

PATIENT
  Age: 46 Year
  Sex: Male
  Weight: 102.9665 kg

DRUGS (2)
  1. OXYCONTIN [Suspect]
     Indication: PAIN
     Dosage: 20MG TID PO
     Route: 048
     Dates: start: 20101104, end: 20101202
  2. OXYCONTIN [Suspect]
     Indication: PAIN
     Dosage: 80MG BID PO
     Route: 048
     Dates: start: 20101104, end: 20101202

REACTIONS (2)
  - DRUG INEFFECTIVE [None]
  - PRODUCT SUBSTITUTION ISSUE [None]
